FAERS Safety Report 9234836 (Version 1)
Quarter: 2013Q2

REPORT INFORMATION
  Report Type: Report from Study
  Country: CZ (occurrence: CZ)
  Receive Date: 20130416
  Receipt Date: 20130416
  Transmission Date: 20140414
  Serious: Yes (Hospitalization)
  Sender: FDA-Public Use
  Company Number: CZ-ABBOTT-13P-217-1074669-00

PATIENT
  Age: 68 Year
  Sex: Female

DRUGS (2)
  1. HUMIRA [Suspect]
     Indication: PRODUCT USED FOR UNKNOWN INDICATION
     Route: 058
     Dates: start: 20120727, end: 20121206
  2. HUMIRA [Suspect]
     Route: 058
     Dates: start: 20130211

REACTIONS (2)
  - Spinal disorder [Recovering/Resolving]
  - Hemiplegia [Recovering/Resolving]
